FAERS Safety Report 9454818 (Version 1)
Quarter: 2013Q3

REPORT INFORMATION
  Report Type: Report from Study
  Country: NL (occurrence: NL)
  Receive Date: 20130812
  Receipt Date: 20130812
  Transmission Date: 20140515
  Serious: Yes (Death)
  Sender: FDA-Public Use
  Company Number: NL-ROCHE-1260753

PATIENT
  Sex: Female

DRUGS (10)
  1. MIRCERA [Suspect]
     Indication: NEPHROGENIC ANAEMIA
     Route: 058
     Dates: start: 20121213, end: 20130804
  2. ACETYLCYSTEIN [Concomitant]
     Route: 048
  3. BUMETANIDE [Concomitant]
     Route: 048
  4. CETOMACROGOL [Concomitant]
     Route: 003
  5. DOMPERIDON [Concomitant]
     Route: 048
  6. ENALAPRIL [Concomitant]
     Route: 048
  7. FENTANYL [Concomitant]
     Dosage: 12 MCG EVERY HOUR
     Route: 003
  8. FERROFUMARAT [Concomitant]
     Route: 048
  9. METOCLOPRAMIDE [Concomitant]
     Route: 048
  10. MICONAZOL [Concomitant]
     Dosage: 20MG/G 16 APPL
     Route: 067

REACTIONS (1)
  - Death [Fatal]
